FAERS Safety Report 16528721 (Version 1)
Quarter: 2019Q3

REPORT INFORMATION
  Report Type: Spontaneous
  Country: US (occurrence: US)
  Receive Date: 20190703
  Receipt Date: 20190703
  Transmission Date: 20191004
  Serious: Yes (Hospitalization, Other)
  Sender: FDA-Public Use
  Company Number: US-JNJFOC-20190624624

PATIENT
  Age: 63 Year
  Sex: Male

DRUGS (1)
  1. INVOKAMET [Suspect]
     Active Substance: CANAGLIFLOZIN\METFORMIN HYDROCHLORIDE
     Indication: DIABETES MELLITUS
     Dosage: 50-500 MG
     Route: 048

REACTIONS (4)
  - Diabetic foot infection [Unknown]
  - Toe amputation [Unknown]
  - Osteomyelitis acute [Unknown]
  - Foot fracture [Unknown]

NARRATIVE: CASE EVENT DATE: 201610
